FAERS Safety Report 10040739 (Version 1)
Quarter: 2014Q1

REPORT INFORMATION
  Report Type: Spontaneous
  Country: US (occurrence: None)
  Receive Date: 20140326
  Receipt Date: 20140326
  Transmission Date: 20141002
  Serious: Yes (Hospitalization)
  Sender: FDA-Public Use
  Company Number: None

PATIENT
  Age: 69 Year
  Sex: Male
  Weight: 120.2 kg

DRUGS (2)
  1. NASACORT 24 HR [Suspect]
     Indication: MULTIPLE ALLERGIES
     Dosage: 2 SPRAYS PER DAY ONCE DAILY NASAL
     Route: 045
     Dates: start: 20140309, end: 20140314
  2. NASACORT 24 HR [Suspect]
     Indication: SINUS CONGESTION
     Dosage: 2 SPRAYS PER DAY ONCE DAILY NASAL
     Route: 045
     Dates: start: 20140309, end: 20140314

REACTIONS (5)
  - Cardiac flutter [None]
  - Extrasystoles [None]
  - Asthenia [None]
  - Dizziness [None]
  - Heart rate irregular [None]
